FAERS Safety Report 24330014 (Version 1)
Quarter: 2024Q3

REPORT INFORMATION
  Report Type: Report from Study
  Country: CA (occurrence: CA)
  Receive Date: 20240917
  Receipt Date: 20240917
  Transmission Date: 20241016
  Serious: Yes (Other)
  Sender: ABBVIE
  Company Number: CA-ABBVIE-5922714

PATIENT
  Age: 48 Year
  Sex: Female

DRUGS (1)
  1. RINVOQ [Suspect]
     Active Substance: UPADACITINIB
     Indication: Rheumatoid arthritis
     Dosage: FORM STRENGTH: 15 MILLIGRAM
     Route: 048
     Dates: start: 20210806, end: 202404

REACTIONS (4)
  - Knee arthroplasty [Unknown]
  - Gastric neoplasm [Unknown]
  - Eye operation [Unknown]
  - Arthralgia [Unknown]

NARRATIVE: CASE EVENT DATE: 20240427
